FAERS Safety Report 23016238 (Version 2)
Quarter: 2024Q4

REPORT INFORMATION
  Report Type: Spontaneous
  Country: US (occurrence: US)
  Receive Date: 20231002
  Receipt Date: 20241216
  Transmission Date: 20250115
  Serious: Yes (Other)
  Sender: BIOMARIN
  Company Number: US-SA-2014SA169912

PATIENT

DRUGS (3)
  1. LARONIDASE [Suspect]
     Active Substance: LARONIDASE
     Indication: Mucopolysaccharidosis I
     Dosage: 58 MG, QW
     Route: 041
     Dates: start: 20050120
  2. LARONIDASE [Suspect]
     Active Substance: LARONIDASE
     Dosage: 55.1 MG, QW
     Route: 041
     Dates: start: 20120724
  3. LARONIDASE [Suspect]
     Active Substance: LARONIDASE
     Dosage: 58 MG, QW
     Route: 042
     Dates: start: 20201126

REACTIONS (14)
  - Carpal tunnel syndrome [Recovered/Resolved]
  - Tenoplasty [Unknown]
  - Spinal operation [Unknown]
  - Surgery [Unknown]
  - Mobility decreased [Unknown]
  - Wound [Recovering/Resolving]
  - Nasopharyngitis [Recovering/Resolving]
  - Umbilical hernia [Recovering/Resolving]
  - Catheter site haemorrhage [Unknown]
  - Back disorder [Not Recovered/Not Resolved]
  - Intervertebral disc protrusion [Not Recovered/Not Resolved]
  - Back pain [Not Recovered/Not Resolved]
  - Tooth extraction [Recovering/Resolving]
  - Product administration error [Unknown]

NARRATIVE: CASE EVENT DATE: 20141103
